FAERS Safety Report 7673499-5 (Version None)
Quarter: 2011Q3

REPORT INFORMATION
  Report Type: 
  Country: None (occurrence: None)
  Receive Date: 20110810
  Receipt Date: 20110727
  Transmission Date: 20111222
  Serious: Yes (Other)
  Sender: FDA-Public Use
  Company Number: FR-ALVOGEN-FR-WARNER CHILCOTT-CIP11000301

PATIENT
  Sex: Female

DRUGS (16)
  1. FURADANTIN [Suspect]
     Indication: URINARY TRACT INFECTION
     Dosage: 2 DOSAGE FORMS WEEKLY
     Route: 048
     Dates: start: 20061101, end: 20061201
  2. STRONTIUM RANELATE [Concomitant]
     Dosage: UNK
     Route: 065
  3. CLOPIDOGREL [Concomitant]
     Dosage: UNK
     Route: 065
  4. ACETAMINOPHEN [Concomitant]
     Route: 065
  5. FURADANTIN [Suspect]
     Dosage: 1 DF, DAILY
     Route: 048
     Dates: start: 20090101, end: 20100501
  6. KETOTIFEN [Concomitant]
     Route: 065
  7. FURADANTIN [Suspect]
     Dosage: 2 DF WEEKLY
     Route: 048
     Dates: start: 20081001, end: 20081101
  8. FURADANTIN [Suspect]
     Dosage: 1 DF DAILY
     Route: 048
     Dates: start: 20100501, end: 20110210
  9. VASTAREL [Concomitant]
     Dosage: UNK
     Route: 065
  10. GINKGO BILOBA EXTRACT [Concomitant]
     Route: 065
  11. FURADANTIN [Suspect]
     Route: 048
     Dates: end: 20110301
  12. CALCIUM CARBONATE [Concomitant]
     Indication: OSTEOPOROSIS
     Dosage: UNK
     Route: 065
  13. FURADANTIN [Suspect]
     Dosage: 2 DOSAGE FORMS WEEKLY
     Route: 048
     Dates: start: 20070601, end: 20070701
  14. FURADANTIN [Suspect]
     Dosage: 1 DF DAILY
     Route: 048
     Dates: start: 20070701, end: 20080101
  15. NICERGOLINE [Concomitant]
     Dosage: UNK
     Route: 065
  16. FIXICAL [Concomitant]
     Route: 065

REACTIONS (8)
  - IDIOPATHIC THROMBOCYTOPENIC PURPURA [None]
  - LUNG INFILTRATION [None]
  - CONTUSION [None]
  - PLEURAL FIBROSIS [None]
  - COUGH [None]
  - PRURITUS [None]
  - PULMONARY FIBROSIS [None]
  - THROMBOCYTOPENIA [None]
